FAERS Safety Report 6694574-8 (Version None)
Quarter: 2010Q2

REPORT INFORMATION
  Report Type: 
  Country: None (occurrence: None)
  Receive Date: 20100423
  Receipt Date: 20100414
  Transmission Date: 20101027
  Serious: Yes (Other)
  Sender: FDA-Public Use
  Company Number: JP-MERCK-1004USA02930

PATIENT
  Age: 13 Year
  Sex: Female
  Weight: 40 kg

DRUGS (14)
  1. PEPCID [Suspect]
     Indication: GASTRITIS
     Route: 042
     Dates: start: 20100304, end: 20100301
  2. PEPCID [Suspect]
     Route: 042
     Dates: start: 20100309, end: 20100310
  3. PROGRAF [Suspect]
     Indication: BONE MARROW TRANSPLANT
     Route: 042
     Dates: start: 20100304, end: 20100306
  4. PROGRAF [Suspect]
     Route: 042
     Dates: start: 20100307, end: 20100309
  5. PROGRAF [Suspect]
     Route: 042
     Dates: start: 20100310, end: 20100312
  6. ACYCLOVIR [Concomitant]
     Route: 065
     Dates: start: 20100228, end: 20100402
  7. CLAFORAN [Concomitant]
     Route: 065
     Dates: start: 20100304, end: 20100312
  8. FUNGUARD [Concomitant]
     Route: 065
     Dates: start: 20100304, end: 20100317
  9. MESTRANOL AND NORETHINDRONE [Concomitant]
     Route: 065
  10. URSO 250 [Concomitant]
     Route: 065
     Dates: start: 20100221
  11. NEUTROGIN [Concomitant]
     Route: 065
     Dates: start: 20100310, end: 20100326
  12. METHOTREXATE [Suspect]
     Indication: BONE MARROW TRANSPLANT
     Route: 042
     Dates: start: 20100306
  13. METHOTREXATE [Suspect]
     Route: 042
     Dates: start: 20100308
  14. METHOTREXATE [Suspect]
     Route: 042
     Dates: start: 20100311

REACTIONS (1)
  - PANCREATITIS ACUTE [None]
